FAERS Safety Report 16748811 (Version 1)
Quarter: 2019Q3

REPORT INFORMATION
  Report Type: Spontaneous
  Country: CA (occurrence: CA)
  Receive Date: 20190828
  Receipt Date: 20190828
  Transmission Date: 20191005
  Serious: Yes (Other)
  Sender: FDA-Public Use
  Company Number: CA-ORION CORPORATION ORION PHARMA-TREX2019-3038

PATIENT
  Age: 47 Year
  Sex: Female

DRUGS (10)
  1. ARTHROTEC [Concomitant]
     Active Substance: DICLOFENAC SODIUM\MISOPROSTOL
     Route: 065
  2. METHOTREXATE (TRADE NAME UNKNOWN) [Suspect]
     Active Substance: METHOTREXATE
     Route: 065
  3. HUMIRA [Suspect]
     Active Substance: ADALIMUMAB
     Indication: RHEUMATOID ARTHRITIS
     Route: 058
  4. METHOTREXATE (TRADE NAME UNKNOWN) [Suspect]
     Active Substance: METHOTREXATE
     Route: 065
  5. ENBREL [Suspect]
     Active Substance: ETANERCEPT
     Indication: RHEUMATOID ARTHRITIS
     Route: 058
  6. PREDNISONE. [Concomitant]
     Active Substance: PREDNISONE
     Route: 065
  7. METHOTREXATE (TRADE NAME UNKNOWN) [Suspect]
     Active Substance: METHOTREXATE
     Indication: PRODUCT USED FOR UNKNOWN INDICATION
     Route: 065
  8. HUMIRA [Suspect]
     Active Substance: ADALIMUMAB
     Route: 058
  9. HYDROXYCHLOROQUINE [Suspect]
     Active Substance: HYDROXYCHLOROQUINE
     Indication: RHEUMATOID ARTHRITIS
     Route: 065
  10. METHOTREXATE (TRADE NAME UNKNOWN) [Suspect]
     Active Substance: METHOTREXATE
     Route: 065

REACTIONS (20)
  - Drug intolerance [Unknown]
  - Hypoaesthesia [Unknown]
  - Angioedema [Unknown]
  - Alopecia [Unknown]
  - Diarrhoea [Unknown]
  - Rheumatoid factor positive [Unknown]
  - Swelling face [Unknown]
  - Anaemia [Unknown]
  - Hepatic enzyme abnormal [Unknown]
  - Feeling drunk [Unknown]
  - Nausea [Unknown]
  - Gastrointestinal disorder [Unknown]
  - Bone erosion [Unknown]
  - Uveitis [Unknown]
  - Asthenia [Unknown]
  - Migraine [Unknown]
  - Pharyngeal oedema [Unknown]
  - Synovitis [Unknown]
  - Anti-cyclic citrullinated peptide antibody positive [Unknown]
  - Dyspnoea [Unknown]
